FAERS Safety Report 16757790 (Version 6)
Quarter: 2020Q1

REPORT INFORMATION
  Report Type: Report from Study
  Country: None (occurrence: US)
  Receive Date: 20190830
  Receipt Date: 20200320
  Transmission Date: 20200409
  Serious: Yes (Other)
  Sender: FDA-Public Use
  Company Number: US-ABBVIE-19K-163-2907816-00

PATIENT
  Age: 66 Year
  Sex: Female
  Weight: 46.31 kg

DRUGS (5)
  1. HUMIRA [Suspect]
     Active Substance: ADALIMUMAB
     Indication: PSORIASIS
  2. HUMIRA [Suspect]
     Active Substance: ADALIMUMAB
     Indication: PSORIATIC ARTHROPATHY
     Route: 058
     Dates: start: 2015
  3. VALIUM [Concomitant]
     Active Substance: DIAZEPAM
     Indication: PRODUCT USED FOR UNKNOWN INDICATION
  4. TRAZODONE [Concomitant]
     Active Substance: TRAZODONE HYDROCHLORIDE
     Indication: PRODUCT USED FOR UNKNOWN INDICATION
  5. OXYCODONE [Concomitant]
     Active Substance: OXYCODONE
     Indication: PRODUCT USED FOR UNKNOWN INDICATION

REACTIONS (27)
  - Haemorrhage [Unknown]
  - Dermal cyst [Recovered/Resolved]
  - Eye oedema [Unknown]
  - Psoriasis [Unknown]
  - Pain [Unknown]
  - Hypersensitivity [Unknown]
  - Sciatic nerve neuropathy [Unknown]
  - Eye injury [Recovering/Resolving]
  - Exposure to toxic agent [Unknown]
  - Acrochordon [Unknown]
  - Joint lock [Unknown]
  - Depression [Unknown]
  - Skin cancer [Unknown]
  - Dry skin [Not Recovered/Not Resolved]
  - Malaise [Unknown]
  - Arthropod bite [Unknown]
  - Arthropod sting [Recovered/Resolved]
  - Back pain [Unknown]
  - Toxicity to various agents [Unknown]
  - Fall [Unknown]
  - Headache [Unknown]
  - Muscular weakness [Unknown]
  - Adverse drug reaction [Recovered/Resolved]
  - Pain in extremity [Unknown]
  - Knee arthroplasty [Recovered/Resolved]
  - Limb mass [Unknown]
  - Peripheral swelling [Unknown]

NARRATIVE: CASE EVENT DATE: 201805
